FAERS Safety Report 17247739 (Version 1)
Quarter: 2020Q1

REPORT INFORMATION
  Report Type: Spontaneous
  Country: US (occurrence: US)
  Receive Date: 20200107
  Receipt Date: 20200107
  Transmission Date: 20200409
  Serious: No
  Sender: FDA-Public Use
  Company Number: None

PATIENT
  Age: 36 Year
  Sex: Female
  Weight: 74.25 kg

DRUGS (5)
  1. IRON [Concomitant]
     Active Substance: IRON
  2. VITAMIN C [Concomitant]
     Active Substance: ASCORBIC ACID
  3. CETIRIZINE HYDROCHLORIDE. [Suspect]
     Active Substance: CETIRIZINE HYDROCHLORIDE
     Indication: MULTIPLE ALLERGIES
     Route: 048
     Dates: start: 20100801, end: 20200101
  4. BUPROPION. [Concomitant]
     Active Substance: BUPROPION
  5. LINSOPRIL [Concomitant]

REACTIONS (1)
  - Pruritus [None]

NARRATIVE: CASE EVENT DATE: 20200101
